FAERS Safety Report 9162002 (Version 1)
Quarter: 2013Q1

REPORT INFORMATION
  Report Type: Spontaneous
  Country: NL (occurrence: NL)
  Receive Date: 20130314
  Receipt Date: 20130314
  Transmission Date: 20140127
  Serious: Yes (Life-Threatening, Hospitalization, Other)
  Sender: FDA-Public Use
  Company Number: NL-VERTEX PHARMACEUTICALS INC.-2013-001989

PATIENT
  Age: 66 Year
  Sex: Male
  Weight: 85.5 kg

DRUGS (8)
  1. INCIVO [Suspect]
     Indication: PRODUCT USED FOR UNKNOWN INDICATION
     Route: 065
  2. PEG-INTERFERON [Suspect]
     Indication: PRODUCT USED FOR UNKNOWN INDICATION
     Dosage: 90 ?G, QW
     Route: 065
  3. PEG-INTERFERON [Suspect]
     Dosage: UNK
     Route: 065
  4. RIBAVIRIN [Suspect]
     Indication: PRODUCT USED FOR UNKNOWN INDICATION
     Route: 065
  5. RIBAVIRIN [Suspect]
     Dosage: 800 MG, UNK
     Route: 065
  6. RIBAVIRIN [Suspect]
     Dosage: 200 MG, UNK
     Route: 065
  7. BUMETANIDE [Concomitant]
     Dosage: USED FOR A SHORT TIME
     Route: 048
  8. ANTIBIOTICS [Concomitant]
     Route: 065

REACTIONS (4)
  - Acute coronary syndrome [Recovered/Resolved]
  - Cardiac failure [Recovered/Resolved]
  - Pneumonia [Recovered/Resolved]
  - Anaemia [Recovered/Resolved]
